FAERS Safety Report 20010907 (Version 1)
Quarter: 2021Q4

REPORT INFORMATION
  Report Type: Spontaneous
  Country: US (occurrence: US)
  Receive Date: 20211029
  Receipt Date: 20211029
  Transmission Date: 20220303
  Serious: No
  Sender: FDA-Public Use
  Company Number: US-CELGENE-USA-20211005639

PATIENT
  Sex: Male
  Weight: 97.16 kg

DRUGS (2)
  1. REVLIMID [Suspect]
     Active Substance: LENALIDOMIDE
     Indication: Follicular lymphoma
     Dosage: 20 MILLIGRAM
     Route: 048
     Dates: start: 20211014
  2. RITUXAN [Concomitant]
     Active Substance: RITUXIMAB
     Indication: Product used for unknown indication
     Route: 065
     Dates: start: 20211014

REACTIONS (11)
  - Abnormal dreams [Unknown]
  - Taste disorder [Unknown]
  - Headache [Unknown]
  - Night sweats [Unknown]
  - Insomnia [Unknown]
  - Chills [Unknown]
  - Tremor [Unknown]
  - Decreased appetite [Unknown]
  - Fatigue [Unknown]
  - Fatigue [Unknown]
  - Somnolence [Unknown]

NARRATIVE: CASE EVENT DATE: 20210101
